FAERS Safety Report 9916497 (Version 2)
Quarter: 2014Q1

REPORT INFORMATION
  Report Type: Spontaneous
  Country: FI (occurrence: FI)
  Receive Date: 20140221
  Receipt Date: 20140221
  Transmission Date: 20141002
  Serious: Yes (Death, Life-Threatening, Hospitalization, Disabling)
  Sender: FDA-Public Use
  Company Number: FI-SANOFI-AVENTIS-2012SA079383

PATIENT
  Age: 80 Year
  Sex: Male
  Weight: 90 kg

DRUGS (3)
  1. KLEXANE [Suspect]
     Indication: MYOCARDIAL INFARCTION
     Route: 058
  2. ACETYLSALICYLIC ACID [Concomitant]
     Indication: MYOCARDIAL INFARCTION
  3. CORTICOSTEROID NOS [Concomitant]
     Indication: ASTHMA

REACTIONS (5)
  - Pneumonia [Not Recovered/Not Resolved]
  - Cerebral haemorrhage [Fatal]
  - Hemiparesis [Fatal]
  - Loss of consciousness [Fatal]
  - Subarachnoid haemorrhage [Fatal]
